FAERS Safety Report 5885817-9 (Version None)
Quarter: 2008Q3

REPORT INFORMATION
  Report Type: 
  Country: None (occurrence: None)
  Receive Date: 20080917
  Receipt Date: 20080820
  Transmission Date: 20090109
  Serious: No
  Sender: FDA-Public Use
  Company Number: US-JNJFOC-20080804974

PATIENT
  Age: 35 Year
  Sex: Female

DRUGS (3)
  1. INVEGA [Suspect]
     Route: 048
  2. INVEGA [Suspect]
     Route: 048
  3. INVEGA [Suspect]
     Indication: BIPOLAR DISORDER
     Route: 048

REACTIONS (2)
  - BLOOD PROLACTIN INCREASED [None]
  - GALACTORRHOEA [None]
